FAERS Safety Report 4801114-4 (Version None)
Quarter: 2005Q4

REPORT INFORMATION
  Report Type: 
  Country: None (occurrence: None)
  Receive Date: 20051011
  Receipt Date: 20050927
  Transmission Date: 20060501
  Serious: Yes (Hospitalization, Other)
  Sender: FDA-Public Use
  Company Number: HQWYE738129SEP05

PATIENT
  Age: 64 Year
  Sex: Female

DRUGS (8)
  1. RAPAMUNE [Suspect]
     Indication: PROPHYLAXIS AGAINST TRANSPLANT REJECTION
     Dosage: SEE IMAGE
     Route: 048
     Dates: start: 20050811, end: 20050814
  2. RAPAMUNE [Suspect]
     Indication: PROPHYLAXIS AGAINST TRANSPLANT REJECTION
     Dosage: SEE IMAGE
     Route: 048
     Dates: start: 20050815, end: 20050818
  3. RAPAMUNE [Suspect]
     Indication: PROPHYLAXIS AGAINST TRANSPLANT REJECTION
     Dosage: SEE IMAGE
     Route: 048
     Dates: start: 20050819, end: 20050906
  4. PROGRAF [Concomitant]
  5. THYMOGLOBULIN [Concomitant]
  6. RANITIDINE [Concomitant]
  7. NILSTAT (NYSTATIN) [Concomitant]
  8. CO-TRIMAZOLE (SULFAMETHOXAZOLE /TRIMETHOPRIM) [Concomitant]

REACTIONS (2)
  - BONE MARROW FAILURE [None]
  - MYELODYSPLASTIC SYNDROME [None]
